FAERS Safety Report 9447603 (Version 2)
Quarter: 2013Q3

REPORT INFORMATION
  Report Type: Spontaneous
  Country: GB (occurrence: None)
  Receive Date: 20130805
  Receipt Date: 20130823
  Transmission Date: 20140515
  Serious: Yes (Other)
  Sender: FDA-Public Use
  Company Number: CL-509-2013

PATIENT
  Age: 27 Year
  Sex: Female

DRUGS (11)
  1. CIPROFLOXACIN [Suspect]
     Indication: HORMONE SUPPRESSION THERAPY
     Dosage: FEW DAYS
  2. DIGOXIN [Suspect]
     Dosage: WEEKS
  3. ASPIRIN [Concomitant]
  4. LOSARTAN [Concomitant]
  5. NAPROXEN [Concomitant]
  6. TOPIRAMATE [Concomitant]
  7. LORATADINE [Concomitant]
  8. METOPROLOL [Concomitant]
  9. TRAZODONE [Concomitant]
  10. LANSOPRAZOLE [Concomitant]
  11. ORAL CONTRACEPTIVE [Concomitant]

REACTIONS (4)
  - Drug interaction [None]
  - Toxicity to various agents [None]
  - Weight decreased [None]
  - Nausea [None]
